FAERS Safety Report 9962621 (Version 1)
Quarter: 2014Q1

REPORT INFORMATION
  Report Type: Report from Study
  Country: US (occurrence: US)
  Receive Date: 20140305
  Receipt Date: 20140305
  Transmission Date: 20141002
  Serious: No
  Sender: FDA-Public Use
  Company Number: US-ABBVIE-13P-163-1115634-00

PATIENT
  Sex: Female
  Weight: 64.01 kg

DRUGS (7)
  1. HUMIRA [Suspect]
     Indication: RHEUMATOID ARTHRITIS
     Route: 058
     Dates: end: 2011
  2. PAIN MEDICATIONS [Concomitant]
     Indication: RHEUMATOID ARTHRITIS
  3. ANTIDEPRESSANTS [Concomitant]
     Indication: ARTHRALGIA
  4. VITAMIN D NOS [Concomitant]
     Indication: VITAMIN SUPPLEMENTATION
  5. FOLIC ACID [Concomitant]
     Indication: RHEUMATOID ARTHRITIS
  6. MOTRIN [Concomitant]
     Indication: RHEUMATOID ARTHRITIS
  7. LEVOTHYROXINE [Concomitant]
     Indication: THYROID DISORDER

REACTIONS (3)
  - Skin wound [Recovered/Resolved]
  - Eye infection [Recovered/Resolved]
  - Oral herpes [Recovering/Resolving]
